FAERS Safety Report 26080333 (Version 2)
Quarter: 2025Q4

REPORT INFORMATION
  Report Type: Spontaneous
  Country: GB (occurrence: GB)
  Receive Date: 20251124
  Receipt Date: 20251216
  Transmission Date: 20260117
  Serious: Yes (Disabling)
  Sender: MSN LABORATORIES PRIVATE LIMITED
  Company Number: None

PATIENT

DRUGS (1)
  1. ROSUVASTATIN [Suspect]
     Active Substance: ROSUVASTATIN
     Indication: Product used for unknown indication
     Dosage: 5MG
     Route: 065
     Dates: start: 20251029, end: 20251031

REACTIONS (2)
  - Swelling [Not Recovered/Not Resolved]
  - Fatigue [Unknown]

NARRATIVE: CASE EVENT DATE: 20251101
